FAERS Safety Report 6256402-4 (Version None)
Quarter: 2009Q3

REPORT INFORMATION
  Report Type: 
  Country: None (occurrence: None)
  Receive Date: 20090701
  Receipt Date: 20090701
  Transmission Date: 20100115
  Serious: Yes (Hospitalization)
  Sender: FDA-Public Use
  Company Number: None

PATIENT
  Age: 71 Year
  Sex: Female

DRUGS (6)
  1. WARFARIN SODIUM [Suspect]
     Indication: PULMONARY EMBOLISM
     Dosage: 7MG EVERY OTHER DAY PO
     Route: 048
     Dates: start: 20090505, end: 20090517
  2. TRASTUZUMAB [Suspect]
  3. HYDROCHLOROTHIAZIDE [Concomitant]
  4. FERROUS SULFATE TAB [Concomitant]
  5. ANASTRAZOLE [Concomitant]
  6. NEXIUM [Concomitant]

REACTIONS (10)
  - ASTHENIA [None]
  - GASTROINTESTINAL ARTERIOVENOUS MALFORMATION [None]
  - HAEMATEMESIS [None]
  - HAEMATOCHEZIA [None]
  - HAEMATOCRIT DECREASED [None]
  - HAEMOGLOBIN DECREASED [None]
  - HAEMORRHOIDS [None]
  - INTERNATIONAL NORMALISED RATIO INCREASED [None]
  - MELAENA [None]
  - OESOPHAGITIS [None]
